FAERS Safety Report 9378170 (Version 2)
Quarter: 2013Q3

REPORT INFORMATION
  Report Type: Spontaneous
  Country: GB (occurrence: GB)
  Receive Date: 20130701
  Receipt Date: 20130904
  Transmission Date: 20140515
  Serious: Yes (Other)
  Sender: FDA-Public Use
  Company Number: GB-GLAXOSMITHKLINE-B0902862A

PATIENT
  Age: 60 Year
  Sex: Male

DRUGS (4)
  1. AVANDIA [Suspect]
     Indication: TYPE 2 DIABETES MELLITUS
     Dosage: 4MG PER DAY
     Route: 048
     Dates: start: 20070529, end: 20100416
  2. AMLODIPINE [Concomitant]
  3. ROSUVASTATIN [Concomitant]
  4. BISOPROLOL [Concomitant]

REACTIONS (3)
  - Acute myocardial infarction [Unknown]
  - Joint swelling [Unknown]
  - Myocardial ischaemia [Unknown]
